FAERS Safety Report 11163287 (Version 1)
Quarter: 2015Q2

REPORT INFORMATION
  Report Type: Spontaneous
  Country: US (occurrence: US)
  Receive Date: 20150604
  Receipt Date: 20150604
  Transmission Date: 20150821
  Serious: Yes (Other)
  Sender: FDA-Public Use
  Company Number: US-PFIZER INC-2015182007

PATIENT
  Age: 55 Year
  Sex: Male

DRUGS (2)
  1. METHIMAZOLE. [Suspect]
     Active Substance: METHIMAZOLE
     Indication: TOXIC NODULAR GOITRE
     Dosage: 20 MG, 2X/DAY
  2. CEPHALEXINE [Concomitant]
     Active Substance: CEPHALEXIN
     Indication: CELLULITIS
     Dosage: UNK
     Route: 048

REACTIONS (2)
  - Anti-neutrophil cytoplasmic antibody positive vasculitis [Recovered/Resolved]
  - Osteomyelitis acute [Recovered/Resolved]
